FAERS Safety Report 4286447-5 (Version None)
Quarter: 2004Q1

REPORT INFORMATION
  Report Type: 
  Country: None (occurrence: None)
  Receive Date: 20040204
  Receipt Date: 20040119
  Transmission Date: 20041129
  Serious: Yes (Hospitalization)
  Sender: FDA-Public Use
  Company Number: DSA_23880_2004

PATIENT
  Age: 31 Year
  Sex: Male

DRUGS (3)
  1. TAVOR [Suspect]
     Dates: start: 20040115, end: 20040115
  2. REMERGIL [Suspect]
     Dates: start: 20040115, end: 20040115
  3. METOPROLOL SUCCINATE [Suspect]
     Dates: start: 20040115, end: 20040115

REACTIONS (4)
  - AGITATION [None]
  - HYPOTENSION [None]
  - INTENTIONAL OVERDOSE [None]
  - MULTIPLE DRUG OVERDOSE [None]
